FAERS Safety Report 10102402 (Version 1)
Quarter: 2014Q2

REPORT INFORMATION
  Report Type: Report from Study
  Country: GB (occurrence: GB)
  Receive Date: 20140424
  Receipt Date: 20140424
  Transmission Date: 20141212
  Serious: Yes (Other)
  Sender: FDA-Public Use
  Company Number: PHHY2014GB049125

PATIENT
  Sex: Female

DRUGS (1)
  1. SOMATROPIN [Suspect]

REACTIONS (4)
  - Postpartum haemorrhage [Unknown]
  - Postpartum hypopituitarism [Unknown]
  - Exposure during pregnancy [Unknown]
  - Normal newborn [Unknown]
